FAERS Safety Report 11744816 (Version 3)
Quarter: 2016Q1

REPORT INFORMATION
  Report Type: Spontaneous
  Country: IT (occurrence: IT)
  Receive Date: 20151116
  Receipt Date: 20160129
  Transmission Date: 20160525
  Serious: Yes (Hospitalization, Other)
  Sender: FDA-Public Use
  Company Number: IT-TEVA-607474ACC

PATIENT
  Age: 77 Year
  Sex: Female
  Weight: 80 kg

DRUGS (6)
  1. LONQUEX [Concomitant]
     Active Substance: LIPEGFILGRASTIM
     Indication: NEUTROPENIA
     Dosage: 6 MG
     Route: 058
     Dates: start: 20150603, end: 20150603
  2. VINCRISTINA TEVA ITALIA ^1 MG/ML SOLUZIONE INIETTABILE - TEVA ITALIA S [Suspect]
     Active Substance: VINCRISTINE
     Indication: NON-HODGKIN^S LYMPHOMA
     Dosage: 2 MG CYCLICAL
     Route: 042
     Dates: start: 20150818, end: 20150818
  3. BACTRIM - ROCHE S.P.A. [Concomitant]
     Indication: ANTIBIOTIC THERAPY
  4. ENDOXAN BAXTER - 1 G POLVERE PER SOLUZIONE INIETTABILE [Suspect]
     Active Substance: CYCLOPHOSPHAMIDE
     Indication: NON-HODGKIN^S LYMPHOMA
     Dosage: 1350 MG CYCLICAL
     Route: 042
     Dates: start: 20150818, end: 20150818
  5. ADRIBLASTINA - 200MG/100ML SOLUZIONE INIETTABILE - PFIZER ITALIA S.R.L [Suspect]
     Active Substance: DOXORUBICIN HYDROCHLORIDE
     Indication: NON-HODGKIN^S LYMPHOMA
     Dosage: 90 MG CYCLICAL
     Route: 042
     Dates: start: 20150818, end: 20150818
  6. ZYLORIC- TEOFARMA S.R.L [Concomitant]
     Indication: HYPERURICAEMIA

REACTIONS (3)
  - Face oedema [Recovering/Resolving]
  - Neutropenia [Recovering/Resolving]
  - Thrombocytopenia [Recovering/Resolving]

NARRATIVE: CASE EVENT DATE: 20150827
